FAERS Safety Report 4678572-1 (Version None)
Quarter: 2005Q2

REPORT INFORMATION
  Report Type: 
  Country: None (occurrence: None)
  Receive Date: 20050527
  Receipt Date: 20050518
  Transmission Date: 20051028
  Serious: Yes (Other)
  Sender: FDA-Public Use
  Company Number: 2005-05-1602

PATIENT
  Age: 43 Year
  Sex: Female

DRUGS (1)
  1. INTERFERON ALFA INJECTABLE [Suspect]
     Indication: HEPATITIS C
     Dates: start: 20040501, end: 20041101

REACTIONS (8)
  - ANTINUCLEAR ANTIBODY POSITIVE [None]
  - BASEDOW'S DISEASE [None]
  - DYSAESTHESIA [None]
  - DYSGEUSIA [None]
  - FEELING COLD [None]
  - NEUROPATHY PERIPHERAL [None]
  - SJOGREN'S SYNDROME [None]
  - THYROIDITIS CHRONIC [None]
